FAERS Safety Report 8303828-0 (Version None)
Quarter: 2012Q2

REPORT INFORMATION
  Report Type: 
  Country: None (occurrence: None)
  Receive Date: 20120423
  Receipt Date: 20120416
  Transmission Date: 20120825
  Serious: Yes (Hospitalization, Other)
  Sender: FDA-Public Use
  Company Number: PHHY2011JP111342

PATIENT
  Weight: 39 kg

DRUGS (7)
  1. FAMOTIDINE [Concomitant]
     Indication: CHEMOTHERAPY
     Dosage: 20 MG, UNK
     Route: 048
     Dates: start: 20110118
  2. HALIZON [Concomitant]
     Indication: CHEMOTHERAPY
     Dosage: 12 ML, UNK
     Route: 048
     Dates: start: 20101209
  3. GLEEVEC [Suspect]
     Indication: ACUTE LYMPHOCYTIC LEUKAEMIA
     Route: 048
     Dates: start: 20090101
  4. MECOBALAMIN [Concomitant]
     Indication: CHEMOTHERAPY
     Dosage: 1500 UG, UNK
     Route: 048
     Dates: start: 20110118
  5. MERCAPTOPURINE [Concomitant]
     Indication: ACUTE LYMPHOCYTIC LEUKAEMIA
     Dosage: 88 MG, UNK
     Route: 048
     Dates: start: 20111115
  6. GLEEVEC [Suspect]
     Dosage: 400 MG, DAILY
     Dates: start: 20110121, end: 20111207
  7. BACTRIM [Concomitant]
     Indication: CHEMOTHERAPY
     Dosage: 1 G, UNK
     Route: 048
     Dates: start: 20101209

REACTIONS (6)
  - ANAEMIA [None]
  - BONE PAIN [None]
  - NEOPLASM PROGRESSION [None]
  - NEOPLASM MALIGNANT [None]
  - WHITE BLOOD CELL COUNT DECREASED [None]
  - OSTEOMYELITIS [None]
